FAERS Safety Report 20786349 (Version 2)
Quarter: 2022Q2

REPORT INFORMATION
  Report Type: Spontaneous
  Country: US (occurrence: US)
  Receive Date: 20220504
  Receipt Date: 20220617
  Transmission Date: 20220721
  Serious: Yes (Other)
  Sender: FDA-Public Use
  Company Number: US-COOPERSURGICAL, INC.-US-2022CPS001331

PATIENT
  Age: 22 Year
  Sex: Female
  Weight: 51.701 kg

DRUGS (2)
  1. PARAGARD T 380A [Suspect]
     Active Substance: COPPER
     Indication: Contraception
     Dosage: UNK
     Route: 015
     Dates: start: 20211011, end: 20220414
  2. PREDNISOLONE ACETATE [Concomitant]
     Active Substance: PREDNISOLONE ACETATE
     Indication: Eye drop instillation
     Dosage: UNK
     Route: 065

REACTIONS (4)
  - Ovarian cyst [Unknown]
  - Device dislocation [Recovered/Resolved]
  - Abnormal uterine bleeding [Recovered/Resolved]
  - Muscle spasms [Recovered/Resolved]

NARRATIVE: CASE EVENT DATE: 20220414
